FAERS Safety Report 7575183-5 (Version None)
Quarter: 2011Q2

REPORT INFORMATION
  Report Type: 
  Country: None (occurrence: None)
  Receive Date: 20110627
  Receipt Date: 20110616
  Transmission Date: 20111010
  Serious: Yes (Other)
  Sender: FDA-Public Use
  Company Number: GB-UCBSA-030820

PATIENT
  Sex: Male
  Weight: 51.82 kg

DRUGS (1)
  1. NEUPRO [Suspect]
     Indication: RESTLESS LEGS SYNDROME
     Route: 062
     Dates: start: 20110314, end: 20110319

REACTIONS (5)
  - HALLUCINATION [None]
  - POOR QUALITY SLEEP [None]
  - ABNORMAL DREAMS [None]
  - CONFUSIONAL STATE [None]
  - COGNITIVE DISORDER [None]
